FAERS Safety Report 10187832 (Version 1)
Quarter: 2014Q2

REPORT INFORMATION
  Report Type: Spontaneous
  Country: US (occurrence: US)
  Receive Date: 20140522
  Receipt Date: 20140522
  Transmission Date: 20141212
  Serious: No
  Sender: FDA-Public Use
  Company Number: US-SANOFI-AVENTIS-2013SA088443

PATIENT
  Age: 75 Year
  Sex: Male
  Weight: 103 kg

DRUGS (6)
  1. SOLOSTAR [Suspect]
     Indication: TYPE 2 DIABETES MELLITUS
     Dosage: DOSE:28 UNIT(S)
     Route: 051
     Dates: start: 201007
  2. LANTUS SOLOSTAR [Suspect]
     Indication: TYPE 2 DIABETES MELLITUS
     Dosage: DOSE:28 UNIT(S)
     Route: 051
     Dates: start: 201006
  3. GLIPIZIDE [Concomitant]
  4. METFORMIN [Concomitant]
  5. TAMSULOSIN HYDROCHLORIDE [Concomitant]
  6. CLOPIDOGREL [Concomitant]

REACTIONS (2)
  - Injection site bruising [Unknown]
  - Injection site haematoma [Recovered/Resolved]
